FAERS Safety Report 6487400-3 (Version None)
Quarter: 2009Q4

REPORT INFORMATION
  Report Type: 
  Country: None (occurrence: None)
  Receive Date: 20091210
  Receipt Date: 20091208
  Transmission Date: 20100525
  Serious: Yes (Hospitalization, Other)
  Sender: FDA-Public Use
  Company Number: US-ROXANE LABORATORIES, INC.-2009-RO-01238RO

PATIENT
  Sex: Male

DRUGS (14)
  1. PREDNISONE [Suspect]
     Indication: LIVER TRANSPLANT
     Dosage: 5 MG
  2. PREDNISONE [Suspect]
     Indication: LIVER TRANSPLANT REJECTION
     Route: 048
     Dates: start: 20090404, end: 20090506
  3. BELATACEPT [Suspect]
     Indication: LIVER TRANSPLANT
     Route: 042
     Dates: start: 20080406, end: 20090529
  4. CELLCEPT [Suspect]
     Indication: LIVER TRANSPLANT
     Dosage: 3000 MG
     Route: 048
     Dates: start: 20080406, end: 20090612
  5. CELLCEPT [Suspect]
     Dosage: 1000 MG
     Route: 048
     Dates: start: 20090612
  6. VALCYTE [Concomitant]
     Indication: ANTIVIRAL PROPHYLAXIS
     Route: 048
     Dates: start: 20080407, end: 20090608
  7. NEUPOGEN [Concomitant]
  8. MAGNESIUM OXIDE [Concomitant]
  9. PROCRIT [Concomitant]
  10. OMEPRAZOLE [Concomitant]
  11. IRON SULFATETHIAMIN COMPOUND TAB [Concomitant]
  12. ASPIRIN [Concomitant]
  13. SEPTRA [Concomitant]
  14. FOSCARNET [Concomitant]
     Indication: CYTOMEGALOVIRUS VIRAEMIA
     Route: 042
     Dates: start: 20090610

REACTIONS (3)
  - CONDITION AGGRAVATED [None]
  - EPSTEIN-BARR VIRUS ASSOCIATED LYMPHOPROLIFERATIVE DISORDER [None]
  - LIVER TRANSPLANT REJECTION [None]
